FAERS Safety Report 7438225-3 (Version None)
Quarter: 2011Q2

REPORT INFORMATION
  Report Type: 
  Country: None (occurrence: None)
  Receive Date: 20110421
  Receipt Date: 20110421
  Transmission Date: 20111010
  Serious: Yes (Hospitalization)
  Sender: FDA-Public Use
  Company Number: None

PATIENT
  Sex: Female
  Weight: 62.6 kg

DRUGS (1)
  1. MOXIFLOXACIN HCL [Suspect]
     Indication: PNEUMONIA
     Dosage: 400 MG DAILY IV
     Route: 042
     Dates: start: 20110321, end: 20110321

REACTIONS (2)
  - CHEST X-RAY ABNORMAL [None]
  - RESPIRATORY DISTRESS [None]
